FAERS Safety Report 6707667-3 (Version None)
Quarter: 2010Q2

REPORT INFORMATION
  Report Type: 
  Country: None (occurrence: None)
  Receive Date: 20100503
  Receipt Date: 20090609
  Transmission Date: 20101027
  Serious: No
  Sender: FDA-Public Use
  Company Number: US-ASTRAZENECA-2009UW14726

PATIENT
  Sex: Female
  Weight: 54.4 kg

DRUGS (8)
  1. NEXIUM [Suspect]
     Route: 048
  2. SYNTHROID [Suspect]
     Indication: HYPOTHYROIDISM
     Dates: start: 19890101
  3. SYNTHROID [Suspect]
     Dates: start: 19890101
  4. SYNTHROID [Suspect]
     Dosage: 88 UG FOUR IN 1 WEEK
     Dates: start: 20090101
  5. SYNTHROID [Suspect]
     Dates: start: 20090101
  6. DILTIAZEM HYDROCHLORIDE [Concomitant]
  7. TRIAMCINOLONE ACETONIDE [Concomitant]
  8. DIAZEPAM [Concomitant]

REACTIONS (4)
  - ANXIETY [None]
  - BLOOD THYROID STIMULATING HORMONE DECREASED [None]
  - FEELING ABNORMAL [None]
  - PALPITATIONS [None]
